FAERS Safety Report 8954103 (Version 1)
Quarter: 2012Q4

REPORT INFORMATION
  Report Type: 
  Country: FR (occurrence: FR)
  Receive Date: 20121207
  Receipt Date: 20121207
  Transmission Date: 20130627
  Serious: Yes (Life-Threatening, Hospitalization, Other)
  Sender: FDA-Public Use
  Company Number: FR-MERCK-1212FRA000868

PATIENT
  Age: 60 Year
  Sex: Male

DRUGS (10)
  1. REBETOL [Suspect]
     Indication: CHRONIC HEPATITIS C
     Dosage: 400 mg, bid
     Route: 048
     Dates: end: 20121019
  2. RIBAVIRIN [Suspect]
     Indication: CHRONIC HEPATITIS C
     Dosage: 400 mg, bid
     Dates: end: 20121024
  3. RIBAVIRIN [Suspect]
     Dosage: 400 mg, bid
     Route: 048
     Dates: end: 20121101
  4. ACETAMINOPHEN [Suspect]
     Indication: PRODUCT USED FOR UNKNOWN INDICATION
     Dosage: 1 g, tid
     Dates: end: 20121101
  5. AUGMENTIN [Suspect]
     Indication: PRODUCT USED FOR UNKNOWN INDICATION
     Dosage: UNK
     Dates: start: 201210
  6. AMIKACIN [Suspect]
     Indication: PRODUCT USED FOR UNKNOWN INDICATION
     Dosage: UNK
     Dates: start: 201210
  7. CIFLOX (CIPROFLOXACIN HYDROCHLORIDE) [Concomitant]
     Indication: PRODUCT USED FOR UNKNOWN INDICATION
     Dosage: 400 mg, bid
     Route: 042
  8. TIBERAL [Concomitant]
     Indication: PRODUCT USED FOR UNKNOWN INDICATION
     Dosage: UNK
     Route: 042
  9. TAZOCILLINE [Concomitant]
     Indication: PRODUCT USED FOR UNKNOWN INDICATION
     Dosage: 4 g, qid
     Route: 042
     Dates: start: 20121026
  10. ACUPAN [Concomitant]
     Indication: PRODUCT USED FOR UNKNOWN INDICATION
     Dosage: UNK, prn

REACTIONS (5)
  - Hyperlactacidaemia [Not Recovered/Not Resolved]
  - Pneumonia [Not Recovered/Not Resolved]
  - Multi-organ failure [Recovered/Resolved]
  - Hepatocellular injury [Recovered/Resolved]
  - Renal failure [Recovering/Resolving]
